FAERS Safety Report 10912682 (Version 1)
Quarter: 2015Q1

REPORT INFORMATION
  Report Type: Spontaneous
  Country: US (occurrence: None)
  Receive Date: 20150128
  Receipt Date: 20150128
  Transmission Date: 20150721
  Serious: No
  Sender: FDA-Public Use
  Company Number: 2014TUS012585

PATIENT
  Age: 54 Year
  Sex: Female
  Weight: 90.7 kg

DRUGS (8)
  1. NORCO (HYDROCODONE BITARTRATE, PARACETAMOL) [Concomitant]
  2. BRINTELLIX [Suspect]
     Active Substance: VORTIOXETINE HYDROBROMIDE
     Indication: BIPOLAR DISORDER
     Dosage: SAMPLES
     Route: 048
     Dates: start: 20141122, end: 20141125
  3. ATENOLOL. [Concomitant]
     Active Substance: ATENOLOL
  4. ATIVAN [Concomitant]
     Active Substance: LORAZEPAM
  5. ASPIRIN (ACETYLSALICYLIC ACID) [Concomitant]
     Active Substance: ASPIRIN
  6. LITHIUM [Concomitant]
     Active Substance: LITHIUM CARBONATE
  7. FENTANYL. [Concomitant]
     Active Substance: FENTANYL
  8. LASIX [Concomitant]
     Active Substance: FUROSEMIDE

REACTIONS (5)
  - Energy increased [None]
  - Headache [None]
  - Off label use [None]
  - Peripheral swelling [None]
  - Nausea [None]
